FAERS Safety Report 10020650 (Version 1)
Quarter: 2013Q4

REPORT INFORMATION
  Report Type: Spontaneous
  Country: US (occurrence: None)
  Receive Date: 20131108
  Receipt Date: 20131108
  Transmission Date: 20140711
  Serious: Yes (Life-Threatening, Hospitalization)
  Sender: FDA-Public Use
  Company Number: KAMADA LTD MFR # 43726

PATIENT
  Age: 65 Year
  Sex: Female
  Weight: 133.81 kg

DRUGS (7)
  1. GLASSIA [Suspect]
     Indication: ALPHA-1 ANTI-TRYPSIN DEFICIENCY
     Dosage: 8100+/-10%
     Route: 042
     Dates: start: 201301, end: 201302
  2. SYNTHROID (LEVOTHYROXINE) [Concomitant]
  3. MONTELEUKAT [Concomitant]
  4. SYMBICORT [Concomitant]
  5. VENTOLIN [Concomitant]
  6. ZOLOFT [Concomitant]
  7. OMEPRAZOLE [Concomitant]

REACTIONS (8)
  - Atrial fibrillation [None]
  - Gastritis [None]
  - Renal failure [None]
  - Dehydration [None]
  - Coronary artery occlusion [None]
  - Chest discomfort [None]
  - Cough [None]
  - Post procedural complication [None]
